FAERS Safety Report 8389818-0 (Version None)
Quarter: 2012Q2

REPORT INFORMATION
  Report Type: 
  Country: None (occurrence: None)
  Receive Date: 20120529
  Receipt Date: 20120524
  Transmission Date: 20120825
  Serious: Yes (Other)
  Sender: FDA-Public Use
  Company Number: PHHY2011CA11770

PATIENT
  Sex: Female

DRUGS (2)
  1. ZOLEDRONOC ACID [Suspect]
     Indication: OSTEOPOROSIS
     Dosage: UNK
     Route: 042
     Dates: start: 20100401
  2. ZOLEDRONOC ACID [Suspect]
     Dosage: UNK
     Route: 042
     Dates: start: 20110415

REACTIONS (2)
  - MORPHOEA [None]
  - INFLUENZA LIKE ILLNESS [None]
